FAERS Safety Report 6677449-X (Version None)
Quarter: 2010Q2

REPORT INFORMATION
  Report Type: 
  Country: None (occurrence: None)
  Receive Date: 20100412
  Receipt Date: 20100409
  Transmission Date: 20101027
  Serious: Yes (Death, Hospitalization)
  Sender: FDA-Public Use
  Company Number: A0777158A

PATIENT
  Age: 67 Year
  Sex: Female
  Weight: 50.9 kg

DRUGS (11)
  1. AVANDIA [Suspect]
     Indication: DIABETES MELLITUS
     Dosage: 2MG PER DAY
     Route: 048
     Dates: start: 20030801, end: 20070524
  2. LOPRESSOR [Concomitant]
  3. FOSAMAX [Concomitant]
  4. PROCARDIA XL [Concomitant]
  5. ASPIRIN [Concomitant]
     Dosage: 81MG PER DAY
  6. ZOLOFT [Concomitant]
  7. VASOTEC [Concomitant]
  8. HYDREA [Concomitant]
  9. GLIPIZIDE [Concomitant]
  10. CALCIUM [Concomitant]
  11. MULTI-VITAMIN [Concomitant]

REACTIONS (8)
  - ATRIAL FIBRILLATION [None]
  - CARDIAC FAILURE CONGESTIVE [None]
  - CARDIOMYOPATHY [None]
  - CORONARY ARTERY DISEASE [None]
  - CORONARY ARTERY INSUFFICIENCY [None]
  - HYPERTENSION [None]
  - MYOCARDIAL INFARCTION [None]
  - NERVOUS SYSTEM DISORDER [None]
